FAERS Safety Report 4811802-1 (Version None)
Quarter: 2005Q4

REPORT INFORMATION
  Report Type: 
  Country: None (occurrence: None)
  Receive Date: 20051027
  Receipt Date: 20051027
  Transmission Date: 20060501
  Serious: No
  Sender: FDA-Public Use
  Company Number: None

PATIENT
  Age: 53 Year
  Sex: Male
  Weight: 90.9 kg

DRUGS (24)
  1. SULFAMETHOXAZOLE + TRIMETHOPRIM [Suspect]
     Indication: PNEUMOCYSTIS JIROVECI PNEUMONIA
     Dosage: 30 ML Q8HRS  IV
     Route: 042
     Dates: start: 20050628, end: 20050704
  2. PEG-INTRON [Concomitant]
  3. PROGRAF [Concomitant]
  4. RIBAVIRIN [Concomitant]
  5. DUONEB [Concomitant]
  6. ASCORBIC ACID [Concomitant]
  7. ASPRIN [Concomitant]
  8. AZITHROMYCIN [Concomitant]
  9. BUPRORION [Concomitant]
  10. CASPOFUNGIN [Concomitant]
  11. CODEINE [Concomitant]
  12. ARANESP [Concomitant]
  13. ATIVAN [Concomitant]
  14. VECURONIUM [Concomitant]
  15. FENTANYL [Concomitant]
  16. FUROSEMIDE [Concomitant]
  17. GANCICLOVIR [Concomitant]
  18. HYDRALZINE [Concomitant]
  19. METHYLPREDNISOLONE [Concomitant]
  20. PAROXETINE HCL [Concomitant]
  21. ZOSYN [Concomitant]
  22. SIROLIMUS [Concomitant]
  23. TRAZODONE HCL [Concomitant]
  24. TRAMADOL [Concomitant]

REACTIONS (1)
  - BLOOD METHAEMOGLOBIN PRESENT [None]
